FAERS Safety Report 23100782 (Version 1)
Quarter: 2023Q4

REPORT INFORMATION
  Report Type: Spontaneous
  Country: US (occurrence: None)
  Receive Date: 20231021
  Receipt Date: 20231021
  Transmission Date: 20240109
  Serious: Yes (Other)
  Sender: FDA-Public Use
  Company Number: None

PATIENT
  Sex: Female

DRUGS (24)
  1. ORENCIA [Suspect]
     Active Substance: ABATACEPT
     Indication: Rheumatoid arthritis
     Route: 058
     Dates: start: 20190125
  2. ALBUTEROL AER HFA [Concomitant]
  3. AMLODIPINE [Concomitant]
     Active Substance: AMLODIPINE BESYLATE
  4. AZITHROMYCIN [Concomitant]
     Active Substance: AZITHROMYCIN
  5. AZITHROMYCIN [Concomitant]
     Active Substance: AZITHROMYCIN
  6. BENZONATATE [Concomitant]
     Active Substance: BENZONATATE
  7. CYCLOBENZAPRINE [Concomitant]
     Active Substance: CYCLOBENZAPRINE
  8. DICLOFENAC [Concomitant]
     Active Substance: DICLOFENAC
  9. FENOFIBRATE [Concomitant]
     Active Substance: FENOFIBRATE
  10. ACETAMINOPHEN\HYDROCODONE [Concomitant]
     Active Substance: ACETAMINOPHEN\HYDROCODONE
  11. KETOROLAC INJ [Concomitant]
  12. LEFLUNOMIDE [Concomitant]
     Active Substance: LEFLUNOMIDE
  13. MELOXICAM [Concomitant]
     Active Substance: MELOXICAM
  14. METAXALONE [Concomitant]
     Active Substance: METAXALONE
  15. METHOCARBAMOL [Concomitant]
     Active Substance: METHOCARBAMOL
  16. METHOCARBAMOL [Suspect]
     Active Substance: METHOCARBAMOL
  17. NAPROXEN [Concomitant]
     Active Substance: NAPROXEN
  18. NICOTINE TD DIS24H [Concomitant]
  19. PREDNISONE [Concomitant]
     Active Substance: PREDNISONE
  20. PREDNISONE [Concomitant]
     Active Substance: PREDNISONE
  21. PREDNISONE [Concomitant]
     Active Substance: PREDNISONE
  22. PREDNISONE [Concomitant]
     Active Substance: PREDNISONE
  23. ROSUVASTATIN [Concomitant]
     Active Substance: ROSUVASTATIN
  24. TERBINAFINE [Concomitant]
     Active Substance: TERBINAFINE

REACTIONS (2)
  - Intentional dose omission [None]
  - Surgery [None]
